FAERS Safety Report 12108144 (Version 3)
Quarter: 2016Q2

REPORT INFORMATION
  Report Type: Spontaneous
  Country: JP (occurrence: JP)
  Receive Date: 20160224
  Receipt Date: 20160401
  Transmission Date: 20160815
  Serious: Yes (Hospitalization)
  Sender: FDA-Public Use
  Company Number: JP-ROCHE-1715500

PATIENT
  Age: 74 Year
  Sex: Male

DRUGS (12)
  1. LUCENTIS [Suspect]
     Active Substance: RANIBIZUMAB
     Dosage: GIVEN IN BILATERAL EYES
     Route: 050
     Dates: start: 20150812
  2. LUCENTIS [Suspect]
     Active Substance: RANIBIZUMAB
     Indication: DIABETIC RETINAL OEDEMA
     Dosage: GIVEN IN RIGHT EYE, PREFILLED SYRINGE
     Route: 050
     Dates: start: 20141107
  3. EQUA [Concomitant]
     Active Substance: VILDAGLIPTIN
     Route: 065
  4. LUCENTIS [Suspect]
     Active Substance: RANIBIZUMAB
     Dosage: GIVEN IN LEFT EYE
     Route: 050
     Dates: start: 20141125
  5. LIVALO [Concomitant]
     Active Substance: PITAVASTATIN CALCIUM
  6. LUCENTIS [Suspect]
     Active Substance: RANIBIZUMAB
     Dosage: GIVEN IN BILATERAL EYES
     Route: 050
     Dates: start: 20150602
  7. LUCENTIS [Suspect]
     Active Substance: RANIBIZUMAB
     Dosage: GIVEN IN BILATERAL EYES
     Route: 050
     Dates: start: 20151215
  8. LUCENTIS [Suspect]
     Active Substance: RANIBIZUMAB
     Dosage: IN BILATERAL EYES
     Route: 050
     Dates: start: 20160209, end: 20160209
  9. LUCENTIS [Suspect]
     Active Substance: RANIBIZUMAB
     Dosage: GIVEN IN BILATERAL EYES
     Route: 050
     Dates: start: 20150203
  10. LUCENTIS [Suspect]
     Active Substance: RANIBIZUMAB
     Dosage: GIVEN IN BILATERAL EYES
     Route: 050
     Dates: start: 20150303
  11. LUCENTIS [Suspect]
     Active Substance: RANIBIZUMAB
     Dosage: GIVEN IN BILATERAL EYES
     Route: 050
     Dates: start: 20151013
  12. AZILVA [Concomitant]
     Active Substance: AZILSARTAN KAMEDOXOMIL
     Route: 065

REACTIONS (1)
  - Myocardial infarction [Recovered/Resolved]

NARRATIVE: CASE EVENT DATE: 20160211
